FAERS Safety Report 8007610-3 (Version None)
Quarter: 2011Q4

REPORT INFORMATION
  Report Type: 
  Country: None (occurrence: None)
  Receive Date: 20111222
  Receipt Date: 20111222
  Transmission Date: 20120403
  Serious: Yes (Hospitalization)
  Sender: FDA-Public Use
  Company Number: None

PATIENT
  Age: 56 Year
  Sex: Male
  Weight: 105 kg

DRUGS (1)
  1. KOMBIGLYZE XR [Suspect]
     Indication: TYPE 2 DIABETES MELLITUS
     Dosage: 5MG/1000MG QD PO
     Route: 048
     Dates: start: 20111009, end: 20111018

REACTIONS (3)
  - SWELLING FACE [None]
  - URTICARIA [None]
  - RASH PRURITIC [None]
